FAERS Safety Report 6507291-1 (Version None)
Quarter: 2009Q4

REPORT INFORMATION
  Report Type: 
  Country: None (occurrence: None)
  Receive Date: 20091221
  Receipt Date: 20091208
  Transmission Date: 20100525
  Serious: Yes (Hospitalization)
  Sender: FDA-Public Use
  Company Number: US-ELI_LILLY_AND_COMPANY-US200912002736

PATIENT
  Sex: Female
  Weight: 77.098 kg

DRUGS (14)
  1. PEMETREXED [Suspect]
     Indication: NON-SMALL CELL LUNG CANCER
     Dosage: 500 MG/M2, OTHER
     Route: 042
     Dates: start: 20091120
  2. CARBOPLATIN [Suspect]
     Indication: NON-SMALL CELL LUNG CANCER
     Dosage: UNK, OTHER
     Route: 042
     Dates: start: 20091120
  3. BEVACIZUMAB [Suspect]
     Indication: NON-SMALL CELL LUNG CANCER
     Dosage: 15 MG/KG, UNKNOWN
     Route: 042
     Dates: start: 20091120
  4. DEXAMETHASONE TAB [Concomitant]
     Dosage: 4 MG, UNKNOWN
     Route: 048
  5. EFFEXOR [Concomitant]
     Dosage: 150 MG, DAILY (1/D)
     Route: 048
  6. FERROUS GLUCONATE [Concomitant]
     Dosage: 325 MG, DAILY (1/D)
     Route: 048
  7. FOLIC ACID [Concomitant]
     Dosage: UNK, UNKNOWN
     Route: 065
  8. LORAZEPAM [Concomitant]
     Indication: ANXIETY
     Dosage: 0.5 MG, UNKNOWN
     Route: 065
  9. MEDROXYPROGESTERONE ACETATE [Concomitant]
     Dosage: 10 MG, DAILY (1/D)
     Route: 048
  10. NORCO [Concomitant]
     Dosage: UNK, UNKNOWN
     Route: 065
  11. OXYCONTIN [Concomitant]
     Dosage: 10 MG, UNKNOWN
     Route: 065
  12. REGLAN [Concomitant]
     Dosage: 10 MG, UNKNOWN
     Route: 065
  13. SYMBICORT [Concomitant]
     Dosage: UNK, UNKNOWN
     Route: 065
  14. ASPIRIN [Concomitant]
     Dosage: UNK, UNKNOWN
     Route: 065

REACTIONS (1)
  - RESPIRATORY FAILURE [None]
